FAERS Safety Report 6088723-2 (Version None)
Quarter: 2009Q1

REPORT INFORMATION
  Report Type: 
  Country: None (occurrence: None)
  Receive Date: 20090219
  Receipt Date: 20090212
  Transmission Date: 20090719
  Serious: Yes (Hospitalization)
  Sender: FDA-Public Use
  Company Number: 6048488

PATIENT
  Age: 90 Year
  Sex: Female

DRUGS (5)
  1. BISOPROLOL FUMARATE [Suspect]
     Indication: HYPERTENSION
     Dosage: ORAL, LONG-TERM
     Route: 048
     Dates: end: 20080428
  2. BISOPROLOL FUMARATE [Suspect]
     Indication: HYPERTENSION
     Dosage: ORAL, LONG-TERM
     Route: 048
     Dates: start: 20080429
  3. ZECLAR (500 MG, TABLET) (CLARITHBOMYCIN) [Suspect]
     Indication: SINUSITIS
     Dosage: 2 DOSAGE FORMS (2 DOSAGE FORMS, 1 D) ORAL
     Route: 048
     Dates: start: 20080425, end: 20080426
  4. ALDACTONE [Suspect]
     Indication: HYPERTENSION
     Dosage: LONG-TERM
     Route: 048
     Dates: end: 20080428
  5. ALDACTONE [Suspect]
     Indication: HYPERTENSION
     Dosage: LONG-TERM
     Route: 048
     Dates: start: 20080429

REACTIONS (9)
  - ABDOMINAL PAIN UPPER [None]
  - ALANINE AMINOTRANSFERASE INCREASED [None]
  - ASPARTATE AMINOTRANSFERASE INCREASED [None]
  - BILIARY TRACT DISORDER [None]
  - CHOLESTASIS [None]
  - GALLBLADDER DISORDER [None]
  - GAMMA-GLUTAMYLTRANSFERASE INCREASED [None]
  - LIVER DISORDER [None]
  - TRANSAMINASES INCREASED [None]
